FAERS Safety Report 9157273 (Version 2)
Quarter: 2013Q1

REPORT INFORMATION
  Report Type: Spontaneous
  Country: US (occurrence: US)
  Receive Date: 20130312
  Receipt Date: 20130318
  Transmission Date: 20140127
  Serious: Yes (Other)
  Sender: FDA-Public Use
  Company Number: US-TEVA-389711USA

PATIENT
  Age: 26 None
  Sex: Female

DRUGS (5)
  1. QVAR [Suspect]
     Indication: ASTHMA EXERCISE INDUCED
     Route: 055
     Dates: start: 2006
  2. VITAMINS [Concomitant]
  3. HERBS [Concomitant]
  4. METHYLATED B12 [Concomitant]
  5. FOLATE [Concomitant]

REACTIONS (9)
  - Steroid withdrawal syndrome [Unknown]
  - Malaise [Unknown]
  - Underdose [Unknown]
  - Fatigue [Not Recovered/Not Resolved]
  - Muscular weakness [Unknown]
  - Tremor [Recovering/Resolving]
  - Dyspnoea [Not Recovered/Not Resolved]
  - Hyperventilation [Unknown]
  - Photopsia [Unknown]
